FAERS Safety Report 6550441-1 (Version None)
Quarter: 2010Q1

REPORT INFORMATION
  Report Type: 
  Country: None (occurrence: None)
  Receive Date: 20100125
  Receipt Date: 20090707
  Transmission Date: 20100710
  Serious: No
  Sender: FDA-Public Use
  Company Number: US-ALLERGAN-0909488US

PATIENT
  Age: 76 Year
  Sex: Male

DRUGS (1)
  1. FML [Suspect]
     Indication: DRUG USE FOR UNKNOWN INDICATION
     Dosage: 1 GTT, QID
     Route: 047

REACTIONS (2)
  - EYE IRRITATION [None]
  - OCULAR HYPERAEMIA [None]
